FAERS Safety Report 7584991-6 (Version None)
Quarter: 2011Q2

REPORT INFORMATION
  Report Type: 
  Country: None (occurrence: None)
  Receive Date: 20110630
  Receipt Date: 20110617
  Transmission Date: 20111010
  Serious: Yes (Death)
  Sender: FDA-Public Use
  Company Number: GB-GENENTECH-320496

PATIENT
  Age: 80 Year
  Sex: Male

DRUGS (9)
  1. FLUDARA [Suspect]
     Indication: CHRONIC LYMPHOCYTIC LEUKAEMIA
     Dosage: 50 MG, QAM
     Route: 048
     Dates: start: 20100501, end: 20101001
  2. CYCLOPHOSPHAMIDE [Suspect]
     Dosage: UNK
     Route: 065
  3. COTRIM [Concomitant]
     Indication: PRODUCT USED FOR UNKNOWN INDICATION
     Dosage: UNK
  4. RITUXAN [Suspect]
     Indication: CHRONIC LYMPHOCYTIC LEUKAEMIA
     Dosage: UNK
     Route: 065
     Dates: start: 20100501, end: 20101001
  5. DOMPERIDONE [Concomitant]
     Indication: PRODUCT USED FOR UNKNOWN INDICATION
     Dosage: UNK
  6. RITUXAN [Suspect]
     Dosage: UNK
     Route: 065
  7. CYCLOPHOSPHAMIDE [Suspect]
     Indication: CHRONIC LYMPHOCYTIC LEUKAEMIA
     Dosage: UNK
     Route: 065
     Dates: start: 20100301, end: 20101001
  8. ACYCLOVIR [Concomitant]
     Indication: PRODUCT USED FOR UNKNOWN INDICATION
     Dosage: UNK
  9. FLUDARA [Suspect]
     Dosage: UNK
     Route: 048

REACTIONS (4)
  - AGRANULOCYTOSIS [None]
  - WHITE BLOOD CELL COUNT DECREASED [None]
  - DEATH [None]
  - NEUTROPHIL COUNT DECREASED [None]
